FAERS Safety Report 5918630-4 (Version None)
Quarter: 2008Q4

REPORT INFORMATION
  Report Type: 
  Country: None (occurrence: None)
  Receive Date: 20081015
  Receipt Date: 20081008
  Transmission Date: 20090506
  Serious: Yes (Other)
  Sender: FDA-Public Use
  Company Number: BE-AVENTIS-200815215EU

PATIENT
  Age: 62 Year
  Sex: Male
  Weight: 149 kg

DRUGS (12)
  1. CLEXANE [Suspect]
     Route: 040
     Dates: start: 20080924, end: 20080924
  2. ASAFLOW [Concomitant]
  3. PLAVIX [Concomitant]
  4. FRAXIPARINE [Concomitant]
     Route: 058
  5. ALDACTONE [Concomitant]
  6. EMCONCOR                           /00802601/ [Concomitant]
  7. BURINEX [Concomitant]
  8. CORUNO [Concomitant]
  9. OLMETEC [Concomitant]
  10. GLUCOPHAGE [Concomitant]
  11. NOVOLOG [Concomitant]
  12. SOLU-MEDROL [Concomitant]
     Indication: PROPHYLAXIS

REACTIONS (1)
  - CATHETER THROMBOSIS [None]
